FAERS Safety Report 6429613-2 (Version None)
Quarter: 2009Q4

REPORT INFORMATION
  Report Type: 
  Country: None (occurrence: None)
  Receive Date: 20091103
  Receipt Date: 20091019
  Transmission Date: 20100525
  Serious: Yes (Death, Hospitalization)
  Sender: FDA-Public Use
  Company Number: 02100-JPN-06-0324

PATIENT
  Age: 74 Year
  Sex: Female
  Weight: 62.9 kg

DRUGS (12)
  1. PLETAL [Suspect]
     Indication: CEREBRAL INFARCTION
     Dosage: 81 MG, QD ORAL
     Route: 048
     Dates: start: 20051213, end: 20061008
  2. KETOPROFEN [Concomitant]
  3. VITAMEDIN (BENFOTIAMINE B6/B12 COMBINED DRUG 1) [Concomitant]
  4. ALFAROL (ALFACALCIDOL) [Concomitant]
  5. CEROCRAL (IFENPRODIL TARTRATE) [Concomitant]
  6. MERISLON (BETAHISTINE HYDROCHLORIDE) [Concomitant]
  7. KETOPROFEN [Concomitant]
  8. METHYCOBAL (MECOBALAMIN) [Concomitant]
  9. BONALNO (ALENDRONATE SODIUM HYDRATE) [Concomitant]
  10. SECTOR: LOTION (KETOPROFEN) [Concomitant]
  11. ESTRIEL (ESTRIOL) [Concomitant]
  12. FLAGYL [Concomitant]

REACTIONS (7)
  - EPISTAXIS [None]
  - FEELING ABNORMAL [None]
  - MALAISE [None]
  - MENIERE'S DISEASE [None]
  - SUBCUTANEOUS HAEMATOMA [None]
  - SUDDEN DEATH [None]
  - VERTIGO [None]
